FAERS Safety Report 14655610 (Version 1)
Quarter: 2018Q1

REPORT INFORMATION
  Report Type: Spontaneous
  Country: GR (occurrence: GR)
  Receive Date: 20180319
  Receipt Date: 20180319
  Transmission Date: 20180509
  Serious: Yes (Other)
  Sender: FDA-Public Use
  Company Number: GR-TEVA-2018-GR-868853

PATIENT
  Age: 75 Year
  Sex: Male

DRUGS (10)
  1. 5-FU [Suspect]
     Active Substance: FLUOROURACIL
     Indication: COLORECTAL CANCER METASTATIC
     Dosage: 3900 MG, 1 PER CYCLE
     Route: 041
     Dates: start: 20160105, end: 20160105
  2. 5-FU [Suspect]
     Active Substance: FLUOROURACIL
     Dosage: 3900 MG, 1 PER CYCLE
     Route: 040
     Dates: start: 20160208, end: 20160208
  3. 5-FU [Suspect]
     Active Substance: FLUOROURACIL
     Dosage: 650 MG, 1 PER CYCLE
     Route: 041
     Dates: start: 20160105, end: 20160105
  4. IRINOTECAN [Suspect]
     Active Substance: IRINOTECAN
     Indication: COLORECTAL CANCER METASTATIC
     Dosage: 290 MG, 1 PER CYCLE
     Route: 041
     Dates: start: 20160105, end: 20160105
  5. 5-FU [Suspect]
     Active Substance: FLUOROURACIL
     Dosage: 650 MG, 1 PER CYCLE
     Route: 040
     Dates: start: 20160208, end: 20160208
  6. AFLIBERCEPT [Suspect]
     Active Substance: AFLIBERCEPT
     Indication: COLORECTAL CANCER METASTATIC
     Dosage: 230 MG, 1 PER CYCLE
     Route: 041
     Dates: start: 20160105, end: 20160105
  7. IRINOTECAN [Suspect]
     Active Substance: IRINOTECAN
     Dosage: 290 MG, 1 PER CYCLE
     Route: 041
     Dates: start: 20160208, end: 20160208
  8. LEUCOVORIN 650 MG [Suspect]
     Active Substance: LEUCOVORIN
     Indication: COLORECTAL CANCER METASTATIC
     Dosage: 650 MG, 1 PER CYCLE
     Route: 041
     Dates: start: 20160208, end: 20160208
  9. AFLIBERCEPT [Suspect]
     Active Substance: AFLIBERCEPT
     Dosage: 230 MG, 1 PER CYCLE
     Dates: start: 20160208, end: 20160208
  10. GRANULOCYTE COLONY-STIMULATING FACTOR [Concomitant]
     Active Substance: GRANULOCYTE COLONY-STIMULATING FACTOR NOS

REACTIONS (2)
  - Neutropenia [Recovered/Resolved]
  - Epistaxis [Recovered/Resolved]

NARRATIVE: CASE EVENT DATE: 20160222
